FAERS Safety Report 6424199-0 (Version None)
Quarter: 2009Q4

REPORT INFORMATION
  Report Type: 
  Country: None (occurrence: None)
  Receive Date: 20091102
  Receipt Date: 20091021
  Transmission Date: 20100525
  Serious: Yes (Other)
  Sender: FDA-Public Use
  Company Number: US-PFIZER INC-2009287680

PATIENT
  Sex: Female

DRUGS (3)
  1. SULFASALAZINE [Suspect]
     Dosage: UNK
     Dates: start: 20050512
  2. ENBREL [Suspect]
     Indication: RHEUMATOID ARTHRITIS
  3. ASACOL [Concomitant]

REACTIONS (1)
  - ADVERSE DRUG REACTION [None]
